FAERS Safety Report 19141104 (Version 1)
Quarter: 2021Q2

REPORT INFORMATION
  Report Type: Spontaneous
  Country: JP (occurrence: JP)
  Receive Date: 20210415
  Receipt Date: 20210415
  Transmission Date: 20210717
  Serious: Yes (Other)
  Sender: FDA-Public Use
  Company Number: JP-PFIZER INC-2021380598

PATIENT
  Sex: Female

DRUGS (1)
  1. CARDENALIN [Suspect]
     Active Substance: DOXAZOSIN MESYLATE
     Indication: BLOOD PRESSURE INCREASED
     Dosage: 0.5 MG
     Route: 048

REACTIONS (6)
  - Oedema peripheral [Unknown]
  - Pain in extremity [Unknown]
  - Haemorrhage subcutaneous [Unknown]
  - Dizziness [Unknown]
  - Pain [Unknown]
  - Erythema [Unknown]
